FAERS Safety Report 9720811 (Version 1)
Quarter: 2013Q4

REPORT INFORMATION
  Report Type: Report from Study
  Country: US (occurrence: US)
  Receive Date: 20131129
  Receipt Date: 20131129
  Transmission Date: 20140711
  Serious: Yes (Other)
  Sender: FDA-Public Use
  Company Number: US-JNJFOC-20131115089

PATIENT
  Sex: Female

DRUGS (4)
  1. REMICADE [Suspect]
     Indication: COLITIS ULCERATIVE
     Route: 042
     Dates: start: 2010
  2. PROBIOTIC [Concomitant]
     Dosage: DOSE: 50 BILLION ONCE DAILY
     Route: 048
  3. VITAMIN D [Concomitant]
     Indication: VITAMIN SUPPLEMENTATION
     Route: 048
     Dates: start: 2010
  4. CALCIUM AND MAGNESIUM [Concomitant]
     Route: 048
     Dates: start: 2010

REACTIONS (3)
  - Exposure during pregnancy [Recovered/Resolved]
  - Haemorrhoids [Not Recovered/Not Resolved]
  - Premature labour [Recovered/Resolved]
